FAERS Safety Report 10072969 (Version 1)
Quarter: 2014Q2

REPORT INFORMATION
  Report Type: Spontaneous
  Country: US (occurrence: None)
  Receive Date: 20140411
  Receipt Date: 20140411
  Transmission Date: 20141212
  Serious: Yes (Other)
  Sender: FDA-Public Use
  Company Number: None

PATIENT
  Sex: Female

DRUGS (2)
  1. TESTOSTERONE [Suspect]
  2. ESTROGEN [Suspect]

REACTIONS (11)
  - Abnormal dreams [None]
  - Nausea [None]
  - Headache [None]
  - Dizziness [None]
  - Hypersomnia [None]
  - Acne [None]
  - Hypertrichosis [None]
  - Muscle spasms [None]
  - Diarrhoea [None]
  - Off label use [None]
  - Blood testosterone increased [None]
